FAERS Safety Report 17121379 (Version 1)
Quarter: 2019Q4

REPORT INFORMATION
  Report Type: Spontaneous
  Country: US (occurrence: US)
  Receive Date: 20191205
  Receipt Date: 20191205
  Transmission Date: 20200122
  Serious: Yes (Hospitalization)
  Sender: FDA-Public Use
  Company Number: None

PATIENT
  Age: 42 Year
  Sex: Female

DRUGS (12)
  1. PROMETHAZINE [Concomitant]
     Active Substance: PROMETHAZINE HYDROCHLORIDE
  2. MONTELUKAST [Concomitant]
     Active Substance: MONTELUKAST SODIUM
  3. TIZANIDINE. [Concomitant]
     Active Substance: TIZANIDINE
  4. ONDANSETRON [Concomitant]
     Active Substance: ONDANSETRON
  5. CARAFATE [Concomitant]
     Active Substance: SUCRALFATE
  6. OMEPRAZOLE. [Concomitant]
     Active Substance: OMEPRAZOLE
  7. LEVOFLOXACIN. [Concomitant]
     Active Substance: LEVOFLOXACIN
  8. GABAPENTIN. [Concomitant]
     Active Substance: GABAPENTIN
  9. SERTRALINE [Concomitant]
     Active Substance: SERTRALINE HYDROCHLORIDE
  10. OXYCODONE [Concomitant]
     Active Substance: OXYCODONE
  11. FAMOTIDINE. [Concomitant]
     Active Substance: FAMOTIDINE
  12. TRETINOIN. [Suspect]
     Active Substance: TRETINOIN
     Indication: POLYNEUROPATHY
     Route: 048

REACTIONS (1)
  - Influenza [None]
